FAERS Safety Report 11064682 (Version 1)
Quarter: 2015Q2

REPORT INFORMATION
  Report Type: Spontaneous
  Country: US (occurrence: US)
  Receive Date: 20150424
  Receipt Date: 20150424
  Transmission Date: 20150821
  Serious: Yes (Hospitalization)
  Sender: FDA-Public Use
  Company Number: US-ASTRAZENECA-2015SE36354

PATIENT
  Age: 30 Year
  Sex: Female
  Weight: 59 kg

DRUGS (12)
  1. LITHIUM. [Concomitant]
     Active Substance: LITHIUM
  2. LATUDA [Suspect]
     Active Substance: LURASIDONE HYDROCHLORIDE
     Route: 065
     Dates: start: 201502, end: 201504
  3. LATUDA [Suspect]
     Active Substance: LURASIDONE HYDROCHLORIDE
     Route: 065
     Dates: end: 201504
  4. XANAX [Concomitant]
     Active Substance: ALPRAZOLAM
  5. ABILIFY [Suspect]
     Active Substance: ARIPIPRAZOLE
     Indication: ILL-DEFINED DISORDER
     Route: 065
     Dates: start: 20150409
  6. VENLAFAXINE [Concomitant]
     Active Substance: VENLAFAXINE HYDROCHLORIDE
  7. GABAPENTIN. [Concomitant]
     Active Substance: GABAPENTIN
  8. SAPHRIS [Suspect]
     Active Substance: ASENAPINE MALEATE
     Indication: DEPENDENCE
     Route: 065
  9. LITHIUM. [Concomitant]
     Active Substance: LITHIUM
  10. PSYCHIATRIC MEDICATIONS [Concomitant]
     Active Substance: UNSPECIFIED INGREDIENT
     Dates: start: 2001
  11. SEROQUEL [Suspect]
     Active Substance: QUETIAPINE FUMARATE
     Route: 048
  12. ABILIFY [Suspect]
     Active Substance: ARIPIPRAZOLE
     Indication: ILL-DEFINED DISORDER
     Route: 065
     Dates: start: 2013

REACTIONS (10)
  - Toxicity to various agents [Unknown]
  - Alcoholism [Unknown]
  - Adverse event [Unknown]
  - Feeling abnormal [Unknown]
  - Drug dependence [Unknown]
  - Pain in extremity [Unknown]
  - Dyskinesia [Unknown]
  - Drug ineffective [Unknown]
  - Psychotic disorder [Unknown]
  - Anger [Unknown]
